FAERS Safety Report 6395803-0 (Version None)
Quarter: 2009Q4

REPORT INFORMATION
  Report Type: 
  Country: None (occurrence: None)
  Receive Date: 20091009
  Receipt Date: 20090714
  Transmission Date: 20100525
  Serious: No
  Sender: FDA-Public Use
  Company Number: A0769532A

PATIENT
  Age: 50 Year
  Sex: Female

DRUGS (5)
  1. TYKERB [Suspect]
     Indication: BRAIN CANCER METASTATIC
     Dosage: 250MG FIVE TIMES PER DAY
     Route: 048
     Dates: start: 20070201
  2. XELODA [Concomitant]
  3. EFFEXOR [Concomitant]
  4. ZOFRAN [Concomitant]
  5. NEXIUM [Concomitant]

REACTIONS (5)
  - BLISTER [None]
  - NAUSEA [None]
  - PRODUCT QUALITY ISSUE [None]
  - RASH PRURITIC [None]
  - VOMITING [None]
